FAERS Safety Report 8402236-1 (Version None)
Quarter: 2012Q2

REPORT INFORMATION
  Report Type: 
  Country: None (occurrence: None)
  Receive Date: 20120601
  Receipt Date: 20120523
  Transmission Date: 20120825
  Serious: Yes (Other)
  Sender: FDA-Public Use
  Company Number: CA-JNJFOC-20120519212

PATIENT
  Sex: Female
  Weight: 50 kg

DRUGS (3)
  1. PREDNISONE TAB [Concomitant]
     Route: 048
  2. REMICADE [Suspect]
     Indication: BEHCET'S SYNDROME
     Route: 042
     Dates: start: 20110919
  3. CALCIUM WITH VITAMIN D [Concomitant]
     Dosage: 500/400
     Route: 065

REACTIONS (1)
  - PHARYNGITIS [None]
